FAERS Safety Report 6358173-X (Version None)
Quarter: 2009Q3

REPORT INFORMATION
  Report Type: 
  Country: None (occurrence: None)
  Receive Date: 20090916
  Receipt Date: 20090914
  Transmission Date: 20100115
  Serious: Yes (Death, Hospitalization)
  Sender: FDA-Public Use
  Company Number: FR-BRISTOL-MYERS SQUIBB COMPANY-14779078

PATIENT
  Age: 78 Year
  Sex: Female

DRUGS (10)
  1. COUMADIN [Suspect]
     Dates: start: 20090723, end: 20090729
  2. LOVENOX [Suspect]
     Route: 058
     Dates: start: 20090723, end: 20090729
  3. CITALOPRAM HYDROBROMIDE [Suspect]
     Indication: DEPRESSION
     Dates: start: 20090622, end: 20090813
  4. PARACETAMOL [Concomitant]
     Dates: start: 20090723, end: 20090813
  5. TARDYFERON [Concomitant]
     Indication: ANAEMIA
     Dates: start: 20090721, end: 20090813
  6. RISPERDAL [Concomitant]
     Indication: DELIRIUM
     Dates: start: 20090709, end: 20090813
  7. INEXIUM [Concomitant]
     Dates: start: 20090707, end: 20090813
  8. ISOPTIN [Concomitant]
     Indication: ARRHYTHMIA
     Dates: end: 20090813
  9. ISOPTIN [Concomitant]
     Indication: ATRIAL FIBRILLATION
     Dates: end: 20090813
  10. LEVOTHYROXINE SODIUM [Concomitant]
     Indication: HYPOTHYROIDISM
     Dates: end: 20090813

REACTIONS (2)
  - FALL [None]
  - SUBDURAL HAEMATOMA [None]
